FAERS Safety Report 4359370-5 (Version None)
Quarter: 2004Q2

REPORT INFORMATION
  Report Type: 
  Country: None (occurrence: None)
  Receive Date: 20040518
  Receipt Date: 20040507
  Transmission Date: 20050107
  Serious: Yes (Other)
  Sender: FDA-Public Use
  Company Number: US-JNJFOC-20040301306

PATIENT
  Sex: Female
  Weight: 55.79 kg

DRUGS (7)
  1. REMICADE [Suspect]
     Route: 042
  2. REMICADE [Suspect]
     Route: 042
  3. REMICADE [Suspect]
     Route: 042
  4. REMICADE [Suspect]
     Indication: CROHN'S DISEASE
     Route: 042
  5. PREDNISONE [Concomitant]
  6. TYLENOL [Concomitant]
  7. BENADRYL [Concomitant]

REACTIONS (10)
  - CHEST PAIN [None]
  - DYSPNOEA [None]
  - FLUSHING [None]
  - HOT FLUSH [None]
  - INFUSION RELATED REACTION [None]
  - NAUSEA [None]
  - PALPITATIONS [None]
  - PARAESTHESIA [None]
  - THROAT TIGHTNESS [None]
  - TREMOR [None]
